FAERS Safety Report 24412932 (Version 1)
Quarter: 2024Q4

REPORT INFORMATION
  Report Type: Spontaneous
  Country: SI (occurrence: SI)
  Receive Date: 20241008
  Receipt Date: 20241008
  Transmission Date: 20250115
  Serious: Yes (Hospitalization, Other)
  Sender: BRISTOL MYERS SQUIBB
  Company Number: SI-BRISTOL-MYERS SQUIBB COMPANY-2024-155439

PATIENT
  Age: 40 Year
  Sex: Male

DRUGS (4)
  1. OPDIVO [Suspect]
     Active Substance: NIVOLUMAB
     Indication: Clear cell renal cell carcinoma
  2. OPDIVO [Suspect]
     Active Substance: NIVOLUMAB
     Dates: start: 202103
  3. YERVOY [Suspect]
     Active Substance: IPILIMUMAB
     Indication: Clear cell renal cell carcinoma
  4. YERVOY [Suspect]
     Active Substance: IPILIMUMAB
     Dates: start: 202103

REACTIONS (8)
  - Pyrexia [Unknown]
  - Asthenia [Unknown]
  - Hyponatraemia [Unknown]
  - Adrenal insufficiency [Unknown]
  - Polyneuropathy [Unknown]
  - Pleocytosis [Unknown]
  - Borrelia test positive [Unknown]
  - Inappropriate antidiuretic hormone secretion [Unknown]

NARRATIVE: CASE EVENT DATE: 20210420
